FAERS Safety Report 7808932-9 (Version None)
Quarter: 2011Q4

REPORT INFORMATION
  Report Type: 
  Country: None (occurrence: None)
  Receive Date: 20111006
  Receipt Date: 20110920
  Transmission Date: 20120403
  Serious: Yes (Life-Threatening, Hospitalization, Other)
  Sender: FDA-Public Use
  Company Number: 2011MA014190

PATIENT
  Age: 8 Decade
  Sex: Female

DRUGS (1)
  1. HYDROCORTISONE 0.05% CREAM [Suspect]
     Indication: NEONATAL RESPIRATORY DISTRESS SYNDROME
     Dosage: 5 MG;BID;IV
     Route: 042

REACTIONS (2)
  - RESPIRATORY DISTRESS [None]
  - HYPERTROPHIC CARDIOMYOPATHY [None]
